FAERS Safety Report 6468184-1 (Version None)
Quarter: 2009Q4

REPORT INFORMATION
  Report Type: 
  Country: None (occurrence: None)
  Receive Date: 20091202
  Receipt Date: 20091130
  Transmission Date: 20100525
  Serious: Yes (Death)
  Sender: FDA-Public Use
  Company Number: US-GILEAD-2009-0025726

PATIENT
  Sex: Male
  Weight: 76.272 kg

DRUGS (4)
  1. LETAIRIS [Suspect]
     Indication: PULMONARY ARTERIAL HYPERTENSION
     Route: 048
     Dates: start: 20080118
  2. ISOSORBIDE DN [Concomitant]
  3. ZETIA [Concomitant]
  4. BENICAR HCT [Concomitant]

REACTIONS (1)
  - DEATH [None]
